FAERS Safety Report 9904950 (Version 2)
Quarter: 2014Q1

REPORT INFORMATION
  Report Type: Spontaneous
  Country: US (occurrence: US)
  Receive Date: 20140218
  Receipt Date: 20140218
  Transmission Date: 20141002
  Serious: No
  Sender: FDA-Public Use
  Company Number: US-GILEAD-2011-0048446

PATIENT
  Sex: Female

DRUGS (5)
  1. LETAIRIS [Suspect]
     Indication: PULMONARY HYPERTENSION
     Dosage: 5 MG, UNK
     Route: 048
     Dates: start: 20111213
  2. LETAIRIS [Suspect]
     Indication: COR PULMONALE
  3. LETAIRIS [Suspect]
     Indication: HYPOXIA
  4. TYVASO [Concomitant]
  5. REVATIO [Concomitant]

REACTIONS (2)
  - Oedema [Unknown]
  - Swelling [Unknown]
